FAERS Safety Report 6796415-7 (Version None)
Quarter: 2010Q2

REPORT INFORMATION
  Report Type: 
  Country: None (occurrence: None)
  Receive Date: 20100627
  Receipt Date: 20100621
  Transmission Date: 20101027
  Serious: Yes (Life-Threatening, Other)
  Sender: FDA-Public Use
  Company Number: FR-BRISTOL-MYERS SQUIBB COMPANY-15057094

PATIENT
  Age: 56 Year
  Sex: Male
  Weight: 92 kg

DRUGS (6)
  1. APROVEL [Suspect]
     Indication: HYPERTENSION
     Route: 048
     Dates: start: 20090101
  2. COAPROVEL [Suspect]
  3. DIAMICRON [Concomitant]
  4. METFORMIN [Concomitant]
     Dosage: 1DF=1000 UNITS NOS
  5. TRANXENE [Concomitant]
  6. ZOLPIDEM [Concomitant]

REACTIONS (3)
  - ANAPHYLACTIC SHOCK [None]
  - ARTHROPOD STING [None]
  - CARDIO-RESPIRATORY ARREST [None]
